FAERS Safety Report 5777319-5 (Version None)
Quarter: 2008Q2

REPORT INFORMATION
  Report Type: 
  Country: None (occurrence: None)
  Receive Date: 20080618
  Receipt Date: 20080611
  Transmission Date: 20081010
  Serious: Yes (Hospitalization, Other)
  Sender: FDA-Public Use
  Company Number: PHHY2008JP06494

PATIENT
  Age: 56 Year
  Sex: Female

DRUGS (3)
  1. LOCHOL [Suspect]
     Indication: HYPERLIPIDAEMIA
     Dosage: 20 MG/DAY
     Route: 048
     Dates: start: 20060315, end: 20060321
  2. LOCHOL [Suspect]
     Indication: BLOOD TRIGLYCERIDES INCREASED
  3. OTC DRUGS [Concomitant]

REACTIONS (7)
  - ALANINE AMINOTRANSFERASE INCREASED [None]
  - ASPARTATE AMINOTRANSFERASE INCREASED [None]
  - BIOPSY LIVER ABNORMAL [None]
  - BLOOD ALKALINE PHOSPHATASE INCREASED [None]
  - BLOOD BILIRUBIN UNCONJUGATED INCREASED [None]
  - HYPERBILIRUBINAEMIA [None]
  - LIVER DISORDER [None]
